FAERS Safety Report 13591655 (Version 1)
Quarter: 2017Q2

REPORT INFORMATION
  Report Type: Spontaneous
  Country: US (occurrence: US)
  Receive Date: 20170530
  Receipt Date: 20170530
  Transmission Date: 20170830
  Serious: Yes (Disabling)
  Sender: FDA-Public Use
  Company Number: None

PATIENT
  Age: 57 Year
  Sex: Male
  Weight: 87.12 kg

DRUGS (1)
  1. ABILIFY MAINTENA [Suspect]
     Active Substance: ARIPIPRAZOLE
     Indication: MAJOR DEPRESSION
     Dosage: ?          OTHER FREQUENCY:Q 4 WEEKS;?
     Route: 030
     Dates: start: 20170315, end: 20170512

REACTIONS (2)
  - Suicidal ideation [None]
  - Tardive dyskinesia [None]

NARRATIVE: CASE EVENT DATE: 20170512
